FAERS Safety Report 9201638 (Version 1)
Quarter: 2013Q2

REPORT INFORMATION
  Report Type: Spontaneous
  Country: MX (occurrence: MX)
  Receive Date: 20130401
  Receipt Date: 20130401
  Transmission Date: 20140414
  Serious: Yes (Death, Hospitalization, Other)
  Sender: FDA-Public Use
  Company Number: PHHY2012MX090623

PATIENT
  Age: 75 Year
  Sex: Male

DRUGS (5)
  1. EXELON PATCH [Suspect]
     Indication: DEMENTIA ALZHEIMER^S TYPE
     Dosage: 4.6 MG, DAILY
     Route: 062
     Dates: start: 20120808, end: 201302
  2. METFORMIN [Concomitant]
     Indication: DIABETES MELLITUS
     Dosage: UNK
  3. LOSARTAN [Concomitant]
     Indication: HYPERTENSION
     Dosage: UNK
  4. GLIBENCLAMIDE [Concomitant]
     Dosage: UNK
  5. NOOTROPIL [Concomitant]
     Indication: CEREBRAL DISORDER
     Dosage: 1 TSP, DAILY

REACTIONS (10)
  - Pneumonia viral [Fatal]
  - Nasopharyngitis [Fatal]
  - Cerebral thrombosis [Fatal]
  - Disorientation [Fatal]
  - Abasia [Fatal]
  - Mental disorder [Fatal]
  - Memory impairment [Fatal]
  - Diabetic complication [Fatal]
  - Hypertension [Fatal]
  - Cardiovascular disorder [Fatal]
